FAERS Safety Report 6909359-4 (Version None)
Quarter: 2010Q3

REPORT INFORMATION
  Report Type: 
  Country: None (occurrence: None)
  Receive Date: 20100805
  Receipt Date: 20100726
  Transmission Date: 20110219
  Serious: Yes (Hospitalization, Other)
  Sender: FDA-Public Use
  Company Number: DE-WATSON-2010-10193

PATIENT
  Age: 64 Year
  Sex: Male

DRUGS (1)
  1. DOXEPIN HCL [Suspect]
     Indication: ACCIDENTAL EXPOSURE
     Dosage: 100 MG, UNKNOWN
     Route: 048

REACTIONS (17)
  - ACCIDENTAL EXPOSURE [None]
  - APRAXIA [None]
  - ASTHENIA [None]
  - ATAXIA [None]
  - BALANCE DISORDER [None]
  - COORDINATION ABNORMAL [None]
  - DIZZINESS [None]
  - DYSARTHRIA [None]
  - FALL [None]
  - HEADACHE [None]
  - HYPOGLYCAEMIA [None]
  - MUSCULAR WEAKNESS [None]
  - NAUSEA [None]
  - NYSTAGMUS [None]
  - SOMNOLENCE [None]
  - SPEECH DISORDER [None]
  - VERTIGO [None]
